FAERS Safety Report 7546903-0 (Version None)
Quarter: 2011Q2

REPORT INFORMATION
  Report Type: 
  Country: None (occurrence: None)
  Receive Date: 20110614
  Receipt Date: 20110608
  Transmission Date: 20111010
  Serious: Yes (Hospitalization, Other)
  Sender: FDA-Public Use
  Company Number: US-MERCK-0903USA01373

PATIENT
  Age: 64 Year
  Sex: Female

DRUGS (5)
  1. VITAMIN B (UNSPECIFIED) [Concomitant]
     Route: 065
  2. ASCORBIC ACID [Concomitant]
     Route: 065
  3. FOSAMAX [Suspect]
     Indication: OSTEOPOROSIS
     Route: 048
     Dates: start: 19960601
  4. FOSAMAX [Suspect]
     Route: 048
     Dates: end: 20080601
  5. VITAMIN D (UNSPECIFIED) [Concomitant]
     Route: 065

REACTIONS (15)
  - EXTRADURAL HAEMATOMA [None]
  - TINNITUS [None]
  - SKULL FRACTURE [None]
  - INTRADUCTAL PAPILLOMA OF BREAST [None]
  - FEMUR FRACTURE [None]
  - SPINAL OSTEOARTHRITIS [None]
  - JOINT EFFUSION [None]
  - BREAST CANCER [None]
  - CEREBRAL HAEMORRHAGE [None]
  - BREAST DISORDER [None]
  - BREAST HYPERPLASIA [None]
  - ROTATOR CUFF SYNDROME [None]
  - BREAST CELLULITIS [None]
  - SLEEP DISORDER [None]
  - HYPERCHOLESTEROLAEMIA [None]
